FAERS Safety Report 13276348 (Version 1)
Quarter: 2017Q1

REPORT INFORMATION
  Report Type: Spontaneous
  Country: US (occurrence: US)
  Receive Date: 20170227
  Receipt Date: 20170227
  Transmission Date: 20170428
  Serious: Yes (Life-Threatening, Other)
  Sender: FDA-Public Use
  Company Number: None

PATIENT
  Age: 45 Year
  Sex: Female
  Weight: 90 kg

DRUGS (2)
  1. VAGINAL PROGESTERONE [Suspect]
     Active Substance: PROGESTERONE
     Indication: PREGNANCY
     Route: 067
  2. LEXAPRO [Concomitant]
     Active Substance: ESCITALOPRAM OXALATE

REACTIONS (4)
  - Depression [None]
  - Anxiety [None]
  - Impaired work ability [None]
  - Abortion [None]

NARRATIVE: CASE EVENT DATE: 20140226
